FAERS Safety Report 23224916 (Version 1)
Quarter: 2023Q4

REPORT INFORMATION
  Report Type: Spontaneous
  Country: US (occurrence: US)
  Receive Date: 20231124
  Receipt Date: 20231124
  Transmission Date: 20240109
  Serious: Yes (Hospitalization)
  Sender: FDA-Public Use
  Company Number: US-AVET LIFESCIENCES LTD-2023-AVET-000342

PATIENT
  Age: 63 Year
  Sex: Male
  Weight: 102.5 kg

DRUGS (19)
  1. BUSPIRONE [Interacting]
     Active Substance: BUSPIRONE HYDROCHLORIDE
     Indication: Major depression
     Dosage: 30 MILLIGRAM, BID
     Route: 048
  2. BUSPIRONE [Interacting]
     Active Substance: BUSPIRONE HYDROCHLORIDE
     Indication: Anxiety disorder
  3. DESVENLAFAXINE [Interacting]
     Active Substance: DESVENLAFAXINE
     Indication: Major depression
     Dosage: 100 MILLIGRAM DAILY
     Route: 048
  4. DESVENLAFAXINE [Interacting]
     Active Substance: DESVENLAFAXINE
     Indication: Anxiety disorder
  5. TRAZODONE [Interacting]
     Active Substance: TRAZODONE HYDROCHLORIDE
     Indication: Major depression
     Dosage: 50 MILLIGRAM, 1 DOSE PER 1 D (TAKES 50- 150 MG QHS)
     Route: 048
  6. TRAZODONE [Interacting]
     Active Substance: TRAZODONE HYDROCHLORIDE
     Indication: Anxiety disorder
  7. ZIPRASIDONE [Interacting]
     Active Substance: ZIPRASIDONE
     Indication: Major depression
     Dosage: 40 MILLIGRAM, BID
     Route: 048
  8. ZIPRASIDONE [Interacting]
     Active Substance: ZIPRASIDONE
     Indication: Anxiety disorder
  9. BUPROPION [Interacting]
     Active Substance: BUPROPION
     Indication: Major depression
     Dosage: 150 MILLIGRAM DAILY (WITHDRAWN)
     Route: 048
  10. BUPROPION [Interacting]
     Active Substance: BUPROPION
     Indication: Anxiety disorder
     Dosage: 150 MILLIGRAM DAILY (RESTARTED)
     Route: 048
  11. HERBALS\MITRAGYNINE [Interacting]
     Active Substance: HERBALS\MITRAGYNINE
     Indication: Product used for unknown indication
     Dosage: TID (SPRINKLED IN A DRINK 3 TIMES DAILY)
     Route: 065
  12. DICLOFENAC [Concomitant]
     Active Substance: DICLOFENAC
     Dosage: 75 MILLIGRAM, BID
     Route: 048
  13. TIZANIDINE [Concomitant]
     Active Substance: TIZANIDINE
     Dosage: 6 MILLIGRAM, 1 DOSE PER 8HRS (PRN)
     Route: 048
  14. GABAPENTIN [Concomitant]
     Active Substance: GABAPENTIN
     Dosage: 800 MILLIGRAM, EVERY NIGHT BEFORE BED TIME
     Route: 048
  15. GLIMEPIRIDE [Concomitant]
     Active Substance: GLIMEPIRIDE
     Dosage: 4 MILLIGRAM DAILY
     Route: 048
  16. METFORMIN [Concomitant]
     Active Substance: METFORMIN HYDROCHLORIDE
     Dosage: 500 MILLIGRAM, EVERY NIGHT BEFORE BED TIME
     Route: 048
  17. OMEPRAZOLE [Concomitant]
     Active Substance: OMEPRAZOLE
     Dosage: 40 MILLIGRAM DAILY
     Route: 048
  18. HYDROCHLOROTHIAZIDE [Concomitant]
     Active Substance: HYDROCHLOROTHIAZIDE
     Dosage: 25 MILLIGRAM DAILY
     Route: 048
  19. AMLODIPINE [Concomitant]
     Active Substance: AMLODIPINE BESYLATE
     Dosage: 5 MILLIGRAM DAILY
     Route: 048

REACTIONS (2)
  - Serotonin syndrome [Recovered/Resolved]
  - Drug interaction [Unknown]
